FAERS Safety Report 6272044-9 (Version None)
Quarter: 2009Q3

REPORT INFORMATION
  Report Type: 
  Country: None (occurrence: None)
  Receive Date: 20090717
  Receipt Date: 20090708
  Transmission Date: 20100115
  Serious: No
  Sender: FDA-Public Use
  Company Number: A0796908A

PATIENT
  Age: 22 Year
  Sex: Female

DRUGS (1)
  1. PAXIL [Suspect]
     Indication: MAJOR DEPRESSION
     Dosage: 20MG PER DAY
     Route: 048
     Dates: start: 20090422, end: 20090501

REACTIONS (3)
  - DYSPNOEA [None]
  - PANIC ATTACK [None]
  - TACHYCARDIA [None]
